FAERS Safety Report 9435353 (Version 1)
Quarter: 2013Q3

REPORT INFORMATION
  Report Type: Spontaneous
  Country: FR (occurrence: FR)
  Receive Date: 20130801
  Receipt Date: 20130801
  Transmission Date: 20140515
  Serious: Yes (Hospitalization)
  Sender: FDA-Public Use
  Company Number: FR-ROCHE-1254857

PATIENT
  Age: 52 Year
  Sex: Female

DRUGS (2)
  1. MABTHERA [Suspect]
     Indication: EPSTEIN-BARR VIRUS INFECTION
     Route: 065
     Dates: start: 20130507, end: 20130507
  2. CYMEVAN [Suspect]
     Indication: CYTOMEGALOVIRUS INFECTION
     Route: 065
     Dates: start: 20130524, end: 20130608

REACTIONS (1)
  - Febrile bone marrow aplasia [Unknown]
